APPROVED DRUG PRODUCT: AMINOPHYLLIN
Active Ingredient: AMINOPHYLLINE
Strength: 25MG/ML
Dosage Form/Route: INJECTABLE;INJECTION
Application: A087621 | Product #001
Applicant: GD SEARLE LLC
Approved: May 24, 1982 | RLD: Yes | RS: No | Type: DISCN